FAERS Safety Report 5414069-9 (Version None)
Quarter: 2007Q3

REPORT INFORMATION
  Report Type: 
  Country: None (occurrence: None)
  Receive Date: 20070814
  Receipt Date: 20070802
  Transmission Date: 20080115
  Serious: Yes (Other)
  Sender: FDA-Public Use
  Company Number: GB-PFIZER INC-2007066166

PATIENT
  Age: 27 Year
  Sex: Female
  Weight: 86.6 kg

DRUGS (2)
  1. VARENICLINE TABLETS [Suspect]
     Indication: SMOKING CESSATION THERAPY
     Route: 048
  2. YASMIN [Concomitant]
     Indication: CONTRACEPTION
     Route: 048

REACTIONS (2)
  - MOOD SWINGS [None]
  - TEARFULNESS [None]
